FAERS Safety Report 9329591 (Version 1)
Quarter: 2013Q2

REPORT INFORMATION
  Report Type: Spontaneous
  Country: US (occurrence: US)
  Receive Date: 20130604
  Receipt Date: 20130604
  Transmission Date: 20140414
  Serious: No
  Sender: FDA-Public Use
  Company Number: US-SANOFI-AVENTIS-2013SA030728

PATIENT
  Age: 72 Year
  Sex: Female

DRUGS (13)
  1. SOLOSTAR [Suspect]
     Indication: TYPE 2 DIABETES MELLITUS
     Dates: start: 200801
  2. SOLOSTAR [Suspect]
     Indication: TYPE 2 DIABETES MELLITUS
     Dates: start: 200801
  3. SOLOSTAR [Suspect]
     Indication: TYPE 2 DIABETES MELLITUS
     Dates: start: 200801
  4. SOLOSTAR [Suspect]
     Indication: TYPE 2 DIABETES MELLITUS
     Dates: start: 200801
  5. SOLOSTAR [Suspect]
     Indication: TYPE 2 DIABETES MELLITUS
     Dates: start: 200801
  6. SOLOSTAR [Suspect]
     Indication: TYPE 2 DIABETES MELLITUS
     Dates: start: 200801
  7. LANTUS SOLOSTAR [Suspect]
     Indication: TYPE 2 DIABETES MELLITUS
     Dosage: DOSE- 65UNITS/ 25UNITS
     Route: 065
     Dates: start: 200801
  8. LANTUS SOLOSTAR [Suspect]
     Indication: TYPE 2 DIABETES MELLITUS
     Dosage: DOSE- 65UNITS/ 25UNITS
     Route: 065
     Dates: start: 200801
  9. LANTUS SOLOSTAR [Suspect]
     Indication: TYPE 2 DIABETES MELLITUS
     Dosage: DOSE- 65UNITS/ 25UNITS
     Route: 065
     Dates: start: 200801
  10. LANTUS SOLOSTAR [Suspect]
     Indication: TYPE 2 DIABETES MELLITUS
     Dosage: DOSE- 65UNITS/ 25UNITS
     Route: 065
     Dates: start: 200801
  11. LANTUS SOLOSTAR [Suspect]
     Indication: TYPE 2 DIABETES MELLITUS
     Dosage: DOSE- 65UNITS/ 25UNITS
     Route: 065
     Dates: start: 200801
  12. LANTUS SOLOSTAR [Suspect]
     Indication: TYPE 2 DIABETES MELLITUS
     Dosage: DOSE- 65UNITS/ 25UNITS
     Route: 065
     Dates: start: 200801
  13. NOVOLOG [Concomitant]

REACTIONS (4)
  - Visual acuity reduced [Unknown]
  - Thyroid disorder [Unknown]
  - Injection site pain [Unknown]
  - Blood glucose increased [Unknown]
